FAERS Safety Report 9375954 (Version 1)
Quarter: 2013Q2

REPORT INFORMATION
  Report Type: Spontaneous
  Country: GB (occurrence: GB)
  Receive Date: 20130628
  Receipt Date: 20130628
  Transmission Date: 20140414
  Serious: Yes (Life-Threatening, Hospitalization, Other)
  Sender: FDA-Public Use
  Company Number: GB-RB-055371-13

PATIENT
  Age: 20 Year
  Sex: Female

DRUGS (6)
  1. SUBUTEX [Suspect]
     Indication: DRUG DEPENDENCE
     Route: 065
     Dates: end: 2013
  2. SUBUTEX [Suspect]
     Route: 065
     Dates: start: 201306
  3. ALCOHOL [Suspect]
     Indication: PRODUCT USED FOR UNKNOWN INDICATION
     Dosage: DOSING DETAILS UNKNOWN
     Route: 065
  4. HEROIN [Suspect]
     Indication: PRODUCT USED FOR UNKNOWN INDICATION
     Dosage: DOSING DETAILS UNKNOWN
     Route: 065
  5. METHADONE [Suspect]
     Indication: PRODUCT USED FOR UNKNOWN INDICATION
     Dosage: DOSING DETAILS UNKNOWN
     Route: 065
  6. NALOXONE [Suspect]
     Indication: PRODUCT USED FOR UNKNOWN INDICATION
     Dosage: 3 BOLUS INJECTIONS; DOSING DETAILS UNKNOWN
     Route: 030
     Dates: start: 201306, end: 201306

REACTIONS (5)
  - Overdose [Unknown]
  - Respiratory arrest [Unknown]
  - Malaise [Unknown]
  - Sepsis [Unknown]
  - Off label use [Unknown]
